FAERS Safety Report 5498889-0 (Version None)
Quarter: 2007Q4

REPORT INFORMATION
  Report Type: 
  Country: None (occurrence: None)
  Receive Date: 20071026
  Receipt Date: 20070801
  Transmission Date: 20080405
  Serious: No
  Sender: FDA-Public Use
  Company Number: A0667658A

PATIENT
  Age: 54 Year
  Sex: Female

DRUGS (13)
  1. ADVAIR DISKUS 100/50 [Suspect]
     Indication: ASTHMA
     Dosage: 1PUFF TWICE PER DAY
     Route: 055
     Dates: start: 20010101, end: 20070722
  2. LANTUS [Concomitant]
  3. HUMULIN 70/30 [Concomitant]
  4. GLUCOPHAGE XR [Concomitant]
  5. MELOXICAM [Concomitant]
  6. PRAVASTATIN [Concomitant]
  7. NIACIN [Concomitant]
  8. ACLOVATE [Concomitant]
  9. ALBUTEROL [Concomitant]
  10. PRINIVIL [Concomitant]
  11. MULTI-VITAMIN [Concomitant]
  12. VITAMIN B6 [Concomitant]
  13. VITAMIN B-12 [Concomitant]

REACTIONS (1)
  - DYSPNOEA [None]
